FAERS Safety Report 17418649 (Version 1)
Quarter: 2020Q1

REPORT INFORMATION
  Report Type: Spontaneous
  Country: US (occurrence: US)
  Receive Date: 20200131
  Receipt Date: 20200131
  Transmission Date: 20200409
  Serious: Yes (Hospitalization)
  Sender: FDA-Public Use
  Company Number: None

PATIENT
  Age: 61 Year
  Sex: Female

DRUGS (11)
  1. PENTASA CAP CR [Concomitant]
  2. FERREX [Concomitant]
     Active Substance: FERRIC POLYSACCHARIDE COMPLEX
     Dosage: ?          OTHER STRENGTH:150 CAP;?
  3. LIPITOR TAB [Concomitant]
  4. XANAX TAB [Concomitant]
  5. LIQUID B12 LIQ PA [Concomitant]
  6. SYNTHROID TAB [Concomitant]
  7. LEXAPRO TAB [Concomitant]
  8. VITAMIN E CAP [Concomitant]
  9. HUMIRA [Suspect]
     Active Substance: ADALIMUMAB
     Indication: CROHN^S DISEASE
     Route: 058
     Dates: start: 20140220
  10. BUDESONIDE CAP DR [Concomitant]
  11. VITAMIN D3 TAB [Concomitant]

REACTIONS (1)
  - Intestinal obstruction [None]
